FAERS Safety Report 9924906 (Version 2)
Quarter: 2014Q1

REPORT INFORMATION
  Report Type: Spontaneous
  Country: JP (occurrence: None)
  Receive Date: 20140221
  Receipt Date: 20140326
  Transmission Date: 20141002
  Serious: Yes (Hospitalization, Other)
  Sender: FDA-Public Use
  Company Number: ADR-2014-00269

PATIENT
  Age: 78 Year
  Sex: Female
  Weight: 34 kg

DRUGS (1)
  1. GABALON [Suspect]
     Indication: SPINAL CORD DISORDER
     Dates: start: 20110324

REACTIONS (6)
  - Neck pain [None]
  - Spinal cord injury [None]
  - Spinal column stenosis [None]
  - Cervical radiculopathy [None]
  - Iatrogenic injury [None]
  - Procedural complication [None]
